FAERS Safety Report 5045914-7 (Version None)
Quarter: 2006Q2

REPORT INFORMATION
  Report Type: 
  Country: None (occurrence: None)
  Receive Date: 20060601
  Receipt Date: 20060404
  Transmission Date: 20061013
  Serious: No
  Sender: FDA-Public Use
  Company Number: 2006-BP-01027BP

PATIENT
  Age: 78 Year
  Sex: Male

DRUGS (7)
  1. SPIRIVA [Suspect]
     Indication: CHRONIC OBSTRUCTIVE PULMONARY DISEASE
     Dosage: 18 MCG (18 MCG, QD), IH
     Route: 055
     Dates: start: 20040601
  2. SPIRIVA [Suspect]
  3. SPIRIVA [Suspect]
  4. ADVAIR (SERETIDE /01420901/) [Concomitant]
  5. ALBUTEROL SPIROS [Concomitant]
  6. HYPERTENSION MEDICINE [Concomitant]
  7. DIABETES MEDICINE (ANTI-DIABETICS) [Concomitant]

REACTIONS (1)
  - DRUG INEFFECTIVE [None]
